FAERS Safety Report 18357077 (Version 1)
Quarter: 2020Q4

REPORT INFORMATION
  Report Type: Spontaneous
  Country: FR (occurrence: FR)
  Receive Date: 20201007
  Receipt Date: 20201007
  Transmission Date: 20210114
  Serious: Yes (Hospitalization)
  Sender: FDA-Public Use
  Company Number: FR-MYLANLABS-2020M1084663

PATIENT
  Age: 82 Year
  Sex: Female

DRUGS (2)
  1. PEMETREXED. [Suspect]
     Active Substance: PEMETREXED
     Indication: PLEURAL MESOTHELIOMA
     Dosage: 330 MILLIGRAM, CYCLE
     Route: 042
     Dates: start: 202002, end: 20200716
  2. CARBOPLATIN. [Suspect]
     Active Substance: CARBOPLATIN
     Indication: PLEURAL MESOTHELIOMA
     Dosage: 632 MILLIGRAM, CYCLE
     Route: 042
     Dates: start: 202002, end: 20200625

REACTIONS (4)
  - Agitation [Recovered/Resolved]
  - Psychiatric decompensation [Recovered/Resolved]
  - Confusional state [Recovered/Resolved]
  - Delirium [Recovered/Resolved]

NARRATIVE: CASE EVENT DATE: 20200726
